FAERS Safety Report 20813297 (Version 1)
Quarter: 2022Q2

REPORT INFORMATION
  Report Type: Spontaneous
  Country: US (occurrence: None)
  Receive Date: 20220510
  Receipt Date: 20220510
  Transmission Date: 20220720
  Serious: Yes (Hospitalization)
  Sender: FDA-Public Use
  Company Number: None

PATIENT
  Sex: Male

DRUGS (8)
  1. MYCOPHENOLIC ACID [Suspect]
     Active Substance: MYCOPHENOLIC ACID
     Indication: Liver transplant
     Dosage: FREQUENCY : TWICE A DAY;?
     Route: 048
     Dates: start: 20220119
  2. ADVIL [Concomitant]
     Active Substance: IBUPROFEN
  3. ATENOLOL\CHLORTHALIDONE [Concomitant]
     Active Substance: ATENOLOL\CHLORTHALIDONE
  4. EVEROLIMUS [Concomitant]
     Active Substance: EVEROLIMUS
  5. LACTULOSE [Concomitant]
     Active Substance: LACTULOSE
  6. TACROLIMUS [Concomitant]
     Active Substance: TACROLIMUS
  7. TACROLIMUS A [Concomitant]
  8. ZORTRESS [Concomitant]
     Active Substance: EVEROLIMUS

REACTIONS (1)
  - Pelvic fracture [None]
